FAERS Safety Report 9106885 (Version 1)
Quarter: 2013Q1

REPORT INFORMATION
  Report Type: Spontaneous
  Country: US (occurrence: US)
  Receive Date: 20130221
  Receipt Date: 20130221
  Transmission Date: 20140127
  Serious: Yes (Other)
  Sender: FDA-Public Use
  Company Number: US-BRISTOL-MYERS SQUIBB COMPANY-17384447

PATIENT
  Age: 74 Year
  Sex: Male
  Weight: 63.49 kg

DRUGS (10)
  1. COUMADIN TABS [Suspect]
     Indication: ATRIAL FIBRILLATION
     Dosage: 2.5MG AND ONE 1 MG TABLET
  2. ASPIRIN [Suspect]
  3. LASIX [Concomitant]
  4. AMIODARONE [Concomitant]
  5. LISINOPRIL [Concomitant]
  6. CARVEDILOL [Concomitant]
     Dosage: TAB
  7. ASPIRIN [Concomitant]
  8. FISH OIL [Concomitant]
     Dosage: 1DF:1000 UNIT NOS
  9. OXYCODONE [Concomitant]
     Indication: BACK PAIN
     Dosage: 1DF:1/2 TAB
  10. MULTIVITAMIN [Concomitant]

REACTIONS (4)
  - Lymphoma [Unknown]
  - International normalised ratio increased [Unknown]
  - Blood urine present [Unknown]
  - Epistaxis [Unknown]
